FAERS Safety Report 6778865-8 (Version None)
Quarter: 2010Q2

REPORT INFORMATION
  Report Type: 
  Country: None (occurrence: None)
  Receive Date: 20100618
  Receipt Date: 20100609
  Transmission Date: 20101027
  Serious: Yes (Other)
  Sender: FDA-Public Use
  Company Number: GB-JNJFOC-20100504532

PATIENT
  Age: 48 Year
  Sex: Female

DRUGS (4)
  1. CAELYX [Suspect]
     Indication: NEOPLASM MALIGNANT
     Route: 042
  2. CAELYX [Suspect]
     Indication: SARCOMA
     Route: 042
  3. DEXAMETHASONE [Concomitant]
     Route: 065
  4. ONDANSETRON [Concomitant]
     Route: 065

REACTIONS (5)
  - FLUSHING [None]
  - HYPOTENSION [None]
  - INFUSION RELATED REACTION [None]
  - OFF LABEL USE [None]
  - WHEEZING [None]
